FAERS Safety Report 17044430 (Version 2)
Quarter: 2019Q4

REPORT INFORMATION
  Report Type: Spontaneous
  Country: US (occurrence: US)
  Receive Date: 20191118
  Receipt Date: 20191206
  Transmission Date: 20200122
  Serious: No
  Sender: FDA-Public Use
  Company Number: US-ASTRAZENECA-2019SF60169

PATIENT
  Age: 21985 Day
  Sex: Female
  Weight: 60.3 kg

DRUGS (4)
  1. SSRI [Concomitant]
     Active Substance: UNSPECIFIED INGREDIENT
  2. GABAPENTIN. [Concomitant]
     Active Substance: GABAPENTIN
  3. STATIN [Concomitant]
     Active Substance: UNSPECIFIED INGREDIENT
  4. DALIRESP [Suspect]
     Active Substance: ROFLUMILAST
     Indication: CHRONIC OBSTRUCTIVE PULMONARY DISEASE
     Dosage: 250.0UG UNKNOWN
     Route: 048

REACTIONS (2)
  - Nightmare [Unknown]
  - Chronic obstructive pulmonary disease [Recovered/Resolved]

NARRATIVE: CASE EVENT DATE: 20191021
